FAERS Safety Report 7112238-3 (Version None)
Quarter: 2010Q4

REPORT INFORMATION
  Report Type: 
  Country: None (occurrence: None)
  Receive Date: 20101119
  Receipt Date: 20100506
  Transmission Date: 20110411
  Serious: No
  Sender: FDA-Public Use
  Company Number: A0855005A

PATIENT
  Age: 62 Year
  Sex: Male

DRUGS (8)
  1. AVODART [Suspect]
     Indication: BENIGN PROSTATIC HYPERPLASIA
     Dosage: 1CAP PER DAY
     Route: 048
     Dates: start: 20100404
  2. UROXATRAL [Suspect]
     Route: 065
  3. SYNTHROID [Concomitant]
  4. ICAPS [Concomitant]
  5. MULTI-VITAMIN [Concomitant]
  6. ACIDOPHILUS [Concomitant]
  7. ASPIRIN [Concomitant]
  8. VITAMIN B-12 [Concomitant]

REACTIONS (6)
  - ASTHENIA [None]
  - CONSTIPATION [None]
  - FATIGUE [None]
  - GENERAL PHYSICAL HEALTH DETERIORATION [None]
  - HYPERSOMNIA [None]
  - WEIGHT INCREASED [None]
